FAERS Safety Report 7301889-9 (Version None)
Quarter: 2011Q1

REPORT INFORMATION
  Report Type: 
  Country: None (occurrence: None)
  Receive Date: 20110218
  Receipt Date: 20110209
  Transmission Date: 20110831
  Serious: Yes (Life-Threatening)
  Sender: FDA-Public Use
  Company Number: JP-ROCHE-758021

PATIENT
  Age: 82 Year
  Sex: Male

DRUGS (9)
  1. SINGULAIR [Concomitant]
     Route: 048
  2. ELASPOL [Concomitant]
     Route: 051
  3. DENOSINE IV [Suspect]
     Indication: PNEUMONIA CYTOMEGALOVIRAL
     Route: 041
     Dates: end: 20110123
  4. NEORAL [Concomitant]
     Indication: ENCEPHALITIS
     Route: 048
  5. HEPARIN SODIUM [Concomitant]
  6. PREDONINE [Concomitant]
     Route: 048
  7. BAKTAR [Concomitant]
     Route: 048
  8. DIOVAN [Concomitant]
     Route: 048
  9. LAMICTAL [Concomitant]
     Route: 048

REACTIONS (1)
  - DEPRESSED LEVEL OF CONSCIOUSNESS [None]
